FAERS Safety Report 14418673 (Version 1)
Quarter: 2018Q1

REPORT INFORMATION
  Report Type: Spontaneous
  Country: US (occurrence: US)
  Receive Date: 20180122
  Receipt Date: 20180122
  Transmission Date: 20180509
  Serious: No
  Sender: FDA-Public Use
  Company Number: US-TEVA-749953ACC

PATIENT
  Sex: Female

DRUGS (1)
  1. DEXMETHYLPHENIDATE HYDROCHLORIDE. [Suspect]
     Active Substance: DEXMETHYLPHENIDATE HYDROCHLORIDE
     Route: 065

REACTIONS (6)
  - Insomnia [Unknown]
  - Soliloquy [Unknown]
  - Abnormal behaviour [Unknown]
  - Nervousness [Unknown]
  - Mania [Unknown]
  - Hallucination [Unknown]
